FAERS Safety Report 17056034 (Version 1)
Quarter: 2019Q4

REPORT INFORMATION
  Report Type: Report from Study
  Country: None (occurrence: RO)
  Receive Date: 20191121
  Receipt Date: 20191121
  Transmission Date: 20200122
  Serious: Yes (Hospitalization, Other)
  Sender: FDA-Public Use
  Company Number: RO-ABBVIE-19K-135-3001450-00

PATIENT
  Age: 57 Year
  Sex: Female

DRUGS (8)
  1. DICLOREUM [Concomitant]
     Active Substance: DICLOFENAC SODIUM
     Indication: RHEUMATOID ARTHRITIS
     Dosage: UNKNOWN
     Route: 048
  2. COPRENESSA [Concomitant]
     Active Substance: INDAPAMIDE\PERINDOPRIL ERBUMINE
     Indication: HYPERTENSION
     Route: 048
  3. ALPHA D3 [Concomitant]
     Active Substance: ALFACALCIDOL
     Indication: OSTEOPOROSIS
     Route: 048
  4. CONTROLOC [Concomitant]
     Active Substance: PANTOPRAZOLE SODIUM
     Indication: PROPHYLAXIS
     Route: 048
  5. ASPENTER [Concomitant]
     Active Substance: ASPIRIN
     Indication: HYPERTENSION
     Route: 048
  6. HUMIRA [Suspect]
     Active Substance: ADALIMUMAB
     Indication: RHEUMATOID ARTHRITIS
     Route: 058
     Dates: start: 20150515
  7. HEPAGEN-PLUS [Concomitant]
     Indication: PROPHYLAXIS
     Route: 048
  8. LEFLUNOMIDE. [Concomitant]
     Active Substance: LEFLUNOMIDE
     Indication: RHEUMATOID ARTHRITIS
     Route: 048

REACTIONS (5)
  - Pain in extremity [Not Recovered/Not Resolved]
  - Heart rate increased [Recovered/Resolved]
  - Mobility decreased [Not Recovered/Not Resolved]
  - Synovial cyst [Not Recovered/Not Resolved]
  - Spinal pain [Not Recovered/Not Resolved]

NARRATIVE: CASE EVENT DATE: 201905
